FAERS Safety Report 5212192-5 (Version None)
Quarter: 2006Q4

REPORT INFORMATION
  Report Type: 
  Country: None (occurrence: None)
  Receive Date: 20061120
  Receipt Date: 20060921
  Transmission Date: 20070319
  Serious: Yes (Disabling)
  Sender: FDA-Public Use
  Company Number: 2006-BP-10115BP (0)

PATIENT
  Age: 61 Year
  Sex: Female
  Weight: 95.71 kg

DRUGS (3)
  1. MICARDIS HCT [Suspect]
     Indication: HYPERTENSION
     Dosage: SEE TEXT, 80 MG/12.5 MG), PO
     Route: 048
     Dates: end: 20060411
  2. NAPROSYN [Concomitant]
  3. K-DUR 10 [Concomitant]

REACTIONS (2)
  - DIARRHOEA [None]
  - GASTROINTESTINAL DISORDER [None]
